FAERS Safety Report 8908718 (Version 1)
Quarter: 2012Q4

REPORT INFORMATION
  Report Type: 
  Country: KH (occurrence: KH)
  Receive Date: 20121114
  Receipt Date: 20121114
  Transmission Date: 20130627
  Serious: Yes (Other)
  Sender: FDA-Public Use
  Company Number: KH-ROCHE-1154345

PATIENT

DRUGS (1)
  1. AVASTIN [Suspect]
     Indication: GASTROINTESTINAL CARCINOMA
     Route: 065

REACTIONS (1)
  - Hepatic lesion [Unknown]
